FAERS Safety Report 10687161 (Version 1)
Quarter: 2014Q4

REPORT INFORMATION
  Report Type: Spontaneous
  Country: US (occurrence: None)
  Receive Date: 20141229
  Receipt Date: 20141229
  Transmission Date: 20150529
  Serious: Yes (Other)
  Sender: FDA-Public Use
  Company Number: 2014TASUS000630

PATIENT
  Age: 52 Year
  Sex: Female
  Weight: 104.8 kg

DRUGS (13)
  1. VENTOLIN (SALBUTAMOL SULFATE) [Concomitant]
  2. PRAZOSIN (PRAZOSIN HYDROCHLORIDE) [Concomitant]
  3. FLONASE [Concomitant]
     Active Substance: FLUTICASONE PROPIONATE
  4. COGENTIN (BENZATROPE MESILATE) [Concomitant]
  5. IBUPROFEN. [Concomitant]
     Active Substance: IBUPROFEN
  6. SYMBICORT [Concomitant]
     Active Substance: BUDESONIDE\FORMOTEROL FUMARATE DIHYDRATE
  7. ZOLOFT [Concomitant]
     Active Substance: SERTRALINE HYDROCHLORIDE
  8. VITAMINS [Concomitant]
     Active Substance: VITAMINS
  9. HETLIOZ [Suspect]
     Active Substance: TASIMELTEON
     Indication: CIRCADIAN RHYTHM SLEEP DISORDER
     Route: 048
     Dates: start: 201411, end: 2014
  10. LAMICTAL [Concomitant]
     Active Substance: LAMOTRIGINE
  11. QVAR (BECLOMETASONE DIPROPIONATE) [Concomitant]
  12. CLARITIN [Concomitant]
     Active Substance: LORATADINE
  13. ABILIFY [Concomitant]
     Active Substance: ARIPIPRAZOLE

REACTIONS (4)
  - Pharyngeal oedema [None]
  - Swollen tongue [None]
  - Tongue blistering [None]
  - Dyspnoea [None]

NARRATIVE: CASE EVENT DATE: 2014
